FAERS Safety Report 23031980 (Version 3)
Quarter: 2024Q1

REPORT INFORMATION
  Report Type: Spontaneous
  Country: US (occurrence: US)
  Receive Date: 20231005
  Receipt Date: 20240207
  Transmission Date: 20240409
  Serious: No
  Sender: FDA-Public Use
  Company Number: US-SA-SAC20231003002193

PATIENT
  Age: 67 Year
  Sex: Male

DRUGS (3)
  1. JEVTANA [Suspect]
     Active Substance: CABAZITAXEL
     Indication: Bladder cancer recurrent
     Dosage: 5 MG, Q3W
     Route: 043
     Dates: start: 20211014
  2. JEVTANA [Suspect]
     Active Substance: CABAZITAXEL
     Dosage: UNK UNK, Q6W
     Route: 043
     Dates: start: 20211014
  3. JEVTANA [Suspect]
     Active Substance: CABAZITAXEL
     Dosage: 40 MG/ML, Q3W (60MG/1.5ML KIT)
     Route: 042
     Dates: start: 20211118

REACTIONS (1)
  - Incorrect route of product administration [Unknown]

NARRATIVE: CASE EVENT DATE: 20230920
